FAERS Safety Report 5489657-4 (Version None)
Quarter: 2007Q4

REPORT INFORMATION
  Report Type: 
  Country: None (occurrence: None)
  Receive Date: 20071018
  Receipt Date: 20071009
  Transmission Date: 20080405
  Serious: Yes (Hospitalization)
  Sender: FDA-Public Use
  Company Number: B0490589A

PATIENT
  Age: 60 Year
  Sex: Female
  Weight: 51.3 kg

DRUGS (4)
  1. LAPATINIB [Suspect]
     Dosage: 1250MG PER DAY
     Route: 048
     Dates: start: 20070927, end: 20071009
  2. CAPECITABINE [Suspect]
     Dosage: 3000MG PER DAY
     Route: 048
     Dates: start: 20070927, end: 20071007
  3. PREDNISOLONE [Concomitant]
     Dosage: 10MG TWICE PER DAY
     Route: 048
     Dates: start: 20070926
  4. SENNOSIDE [Concomitant]
     Dosage: 20MG AT NIGHT
     Route: 048
     Dates: start: 20070926

REACTIONS (3)
  - DIARRHOEA [None]
  - MOUTH ULCERATION [None]
  - VOMITING [None]
